FAERS Safety Report 8248845-4 (Version None)
Quarter: 2012Q2

REPORT INFORMATION
  Report Type: 
  Country: None (occurrence: None)
  Receive Date: 20120401
  Receipt Date: 20120320
  Transmission Date: 20120825
  Serious: Yes (Other)
  Sender: FDA-Public Use
  Company Number: TR-ELI_LILLY_AND_COMPANY-TR201012004309

PATIENT
  Age: 33 Year
  Sex: Female

DRUGS (4)
  1. PROZAC [Suspect]
     Dosage: 20 MG, DAILY (1/D)
  2. PROZAC [Suspect]
     Dosage: 40 MG, DAILY (1/D)
  3. PROZAC [Suspect]
     Indication: DEPRESSION
     Dosage: 20 MG, DAILY (1/D)
     Dates: start: 19960101, end: 20010101
  4. PROZAC [Suspect]
     Dosage: 20 MG, DAILY (1/D)
     Dates: end: 20040101

REACTIONS (4)
  - SPINAL FRACTURE [None]
  - HUMERUS FRACTURE [None]
  - UPPER LIMB FRACTURE [None]
  - OSTEOPENIA [None]
